FAERS Safety Report 17414074 (Version 1)
Quarter: 2020Q1

REPORT INFORMATION
  Report Type: Spontaneous
  Country: GR (occurrence: GR)
  Receive Date: 20200213
  Receipt Date: 20200213
  Transmission Date: 20200409
  Serious: Yes (Death)
  Sender: FDA-Public Use
  Company Number: NVSC2020GR038462

PATIENT
  Age: 76 Year
  Sex: Male

DRUGS (2)
  1. AMPICILLIN AND SULBACTAM [Suspect]
     Active Substance: AMPICILLIN SODIUM\SULBACTAM SODIUM
     Indication: ANTIINFLAMMATORY THERAPY
     Dosage: 12 G, QD (3 G, 4X/DAY)
     Route: 065
  2. MOXIFLOXACIN. [Suspect]
     Active Substance: MOXIFLOXACIN
     Indication: ANTIINFLAMMATORY THERAPY
     Dosage: 400 MG, QD (400 MG, 1X/DAY)
     Route: 065

REACTIONS (1)
  - Cardiac arrest [Fatal]
